FAERS Safety Report 7826069-X (Version None)
Quarter: 2011Q4

REPORT INFORMATION
  Report Type: 
  Country: None (occurrence: None)
  Receive Date: 20111019
  Receipt Date: 20111010
  Transmission Date: 20120403
  Serious: Yes (Other)
  Sender: FDA-Public Use
  Company Number: GB-ASTRAZENECA-2011SE60678

PATIENT
  Age: 39 Year
  Sex: Female
  Weight: 55.1 kg

DRUGS (1)
  1. MARCAINE [Suspect]
     Route: 037
     Dates: start: 20110923

REACTIONS (2)
  - DRUG INEFFECTIVE [None]
  - ANAESTHETIC COMPLICATION [None]
